FAERS Safety Report 23846505 (Version 2)
Quarter: 2024Q2

REPORT INFORMATION
  Report Type: Spontaneous
  Country: US (occurrence: US)
  Receive Date: 20240513
  Receipt Date: 20240515
  Transmission Date: 20240715
  Serious: Yes (Other)
  Sender: FDA-Public Use
  Company Number: US-ENDO USA, INC.-2024-001443

PATIENT
  Sex: Female

DRUGS (1)
  1. TRAMADOL HYDROCHLORIDE [Suspect]
     Active Substance: TRAMADOL HYDROCHLORIDE
     Indication: Spinal operation
     Dosage: UNK UNK, UNKNOWN
     Route: 065

REACTIONS (1)
  - Impaired healing [Unknown]
